FAERS Safety Report 13477738 (Version 1)
Quarter: 2017Q2

REPORT INFORMATION
  Report Type: Spontaneous
  Country: FR (occurrence: FR)
  Receive Date: 20170425
  Receipt Date: 20170425
  Transmission Date: 20170830
  Serious: Yes (Death, Hospitalization)
  Sender: FDA-Public Use
  Company Number: FR-SA-2017SA072856

PATIENT
  Age: 66 Year
  Sex: Male

DRUGS (4)
  1. SERESTA [Suspect]
     Active Substance: OXAZEPAM
     Route: 048
     Dates: start: 20170308, end: 20170311
  2. CYMBALTA [Suspect]
     Active Substance: DULOXETINE HYDROCHLORIDE
     Route: 048
     Dates: end: 20170310
  3. XEROQUEL LP [Suspect]
     Active Substance: QUETIAPINE FUMARATE
     Route: 048
     Dates: start: 201612
  4. STILNOX [Suspect]
     Active Substance: ZOLPIDEM TARTRATE
     Route: 048
     Dates: end: 20170311

REACTIONS (2)
  - Pneumonia aspiration [Fatal]
  - Somnolence [Fatal]

NARRATIVE: CASE EVENT DATE: 20170308
